FAERS Safety Report 11133152 (Version 1)
Quarter: 2015Q2

REPORT INFORMATION
  Report Type: Spontaneous
  Country: BR (occurrence: BR)
  Receive Date: 20150522
  Receipt Date: 20150522
  Transmission Date: 20150821
  Serious: Yes (Hospitalization, Other)
  Sender: FDA-Public Use
  Company Number: BR-PFIZER INC-2015168440

PATIENT
  Age: 85 Year
  Sex: Female
  Weight: 53 kg

DRUGS (9)
  1. CITALOR [Suspect]
     Active Substance: ATORVASTATIN
     Indication: ARTERIAL OCCLUSIVE DISEASE
     Dosage: 10 MG, DAILY
     Route: 048
     Dates: end: 2012
  2. DEPURA [Concomitant]
     Active Substance: CHOLECALCIFEROL
     Indication: BONE DISORDER
     Dosage: 9 DROPS, DAILY
     Dates: start: 2007
  3. CALDE [Concomitant]
     Active Substance: CALCIUM CARBONATE\CHOLECALCIFEROL
     Indication: BONE DISORDER
     Dosage: 1 TABLET, UNSPECIFIED FREQUENCY
     Dates: start: 2010
  4. CEBRALAT [Concomitant]
     Active Substance: CILOSTAZOL
     Indication: ANGIOPATHY
     Dosage: 2 TABLETS (200 MG), DAILY
     Dates: start: 2010
  5. SELOZOK [Concomitant]
     Active Substance: METOPROLOL SUCCINATE
     Indication: CARDIAC FAILURE
     Dosage: 1 UNSPECIFIED FORMULATION, DAILY
     Dates: start: 2014
  6. LOSARTAN [Concomitant]
     Active Substance: LOSARTAN
     Indication: HYPERTENSION
     Dosage: 2 TABLETS, DAILY
     Dates: start: 2009
  7. PANTOPRAZOLE [Concomitant]
     Active Substance: PANTOPRAZOLE SODIUM
     Indication: GASTRIC DISORDER
     Dosage: 1 UNSPECIFIED FORMULATION, AT UNSPECIFIED FREQUENCY
     Dates: start: 20150224
  8. PLAVIX [Concomitant]
     Active Substance: CLOPIDOGREL BISULFATE
     Indication: BLOOD DISORDER
     Dosage: 1 UNSPECIFIED FORMULATION, DAILY
     Dates: start: 20150224
  9. CITALOR [Suspect]
     Active Substance: ATORVASTATIN
     Dosage: 20 MG
     Dates: start: 2012

REACTIONS (4)
  - Cardiac disorder [Unknown]
  - Renal disorder [Unknown]
  - Renal disorder [Unknown]
  - Aortic injury [Unknown]

NARRATIVE: CASE EVENT DATE: 2005
